FAERS Safety Report 16227624 (Version 32)
Quarter: 2022Q4

REPORT INFORMATION
  Report Type: Report from Study
  Country: CA (occurrence: CA)
  Receive Date: 20190423
  Receipt Date: 20221012
  Transmission Date: 20230113
  Serious: Yes (Hospitalization, Other)
  Sender: FDA-Public Use
  Company Number: CA-002147023-PHHY2017CA189593

PATIENT
  Age: 61 Year
  Sex: Male

DRUGS (89)
  1. TOBRAMYCIN [Suspect]
     Active Substance: TOBRAMYCIN
     Indication: Product used for unknown indication
     Dosage: UNK
     Route: 065
  2. XOLAIR [Suspect]
     Active Substance: OMALIZUMAB
     Indication: Asthma
     Dosage: 375 MILLIGRAM, BIWEEKLY
     Route: 058
     Dates: start: 20111228
  3. XOLAIR [Suspect]
     Active Substance: OMALIZUMAB
     Indication: Bronchopulmonary aspergillosis allergic
     Dosage: UNK, BIWEEKLY
     Route: 058
     Dates: start: 2013
  4. XOLAIR [Suspect]
     Active Substance: OMALIZUMAB
     Dosage: UNK
     Route: 058
     Dates: start: 20171130
  5. XOLAIR [Suspect]
     Active Substance: OMALIZUMAB
     Dosage: UNK
     Route: 058
     Dates: start: 20180214
  6. XOLAIR [Suspect]
     Active Substance: OMALIZUMAB
     Dosage: UNK
     Route: 058
     Dates: start: 20180301
  7. XOLAIR [Suspect]
     Active Substance: OMALIZUMAB
     Dosage: 300 MILLIGRAM, BIWEEKLY
     Route: 058
     Dates: start: 20180927
  8. XOLAIR [Suspect]
     Active Substance: OMALIZUMAB
     Dosage: 375 MILLIGRAM, BIWEEKLY
     Route: 058
     Dates: start: 20181220
  9. XOLAIR [Suspect]
     Active Substance: OMALIZUMAB
     Dosage: 375 MILLIGRAM, BIWEEKLY
     Route: 058
     Dates: start: 20190207
  10. XOLAIR [Suspect]
     Active Substance: OMALIZUMAB
     Dosage: UNK
     Route: 058
     Dates: start: 201902
  11. XOLAIR [Suspect]
     Active Substance: OMALIZUMAB
     Dosage: 375 MILLIGRAM, BIWEEKLY
     Route: 058
     Dates: start: 20190221
  12. XOLAIR [Suspect]
     Active Substance: OMALIZUMAB
     Dosage: 375 MILLIGRAM, BIWEEKLY
     Route: 058
     Dates: start: 20190321
  13. XOLAIR [Suspect]
     Active Substance: OMALIZUMAB
     Dosage: 375 MILLIGRAM, BIWEEKLY
     Route: 058
     Dates: start: 201905
  14. XOLAIR [Suspect]
     Active Substance: OMALIZUMAB
     Dosage: 375 MILLIGRAM, BIWEEKLY
     Route: 058
     Dates: start: 20190903
  15. XOLAIR [Suspect]
     Active Substance: OMALIZUMAB
     Dosage: 375 MILLIGRAM, BIWEEKLY
     Route: 058
     Dates: start: 20191015
  16. XOLAIR [Suspect]
     Active Substance: OMALIZUMAB
     Dosage: 375 MILLIGRAM, BIWEEKLY
     Route: 058
     Dates: start: 20191029
  17. XOLAIR [Suspect]
     Active Substance: OMALIZUMAB
     Dosage: 375 MILLIGRAM, BIWEEKLY
     Route: 058
     Dates: start: 20191112
  18. XOLAIR [Suspect]
     Active Substance: OMALIZUMAB
     Dosage: 375 MILLIGRAM, BIWEEKLY
     Route: 058
     Dates: start: 20191126
  19. XOLAIR [Suspect]
     Active Substance: OMALIZUMAB
     Dosage: 375 MILLIGRAM, BIWEEKLY
     Route: 058
     Dates: start: 20200212
  20. XOLAIR [Suspect]
     Active Substance: OMALIZUMAB
     Dosage: UNK
     Route: 058
     Dates: start: 20200218
  21. XOLAIR [Suspect]
     Active Substance: OMALIZUMAB
     Dosage: 375 MILLIGRAM, BIWEEKLY
     Route: 058
     Dates: start: 2015
  22. XOLAIR [Suspect]
     Active Substance: OMALIZUMAB
     Dosage: 375 MILLIGRAM, BIWEEKLY
     Route: 058
  23. XOLAIR [Suspect]
     Active Substance: OMALIZUMAB
     Dosage: 375 MILLIGRAM, BIWEEKLY
     Route: 058
     Dates: start: 20150130
  24. XOLAIR [Suspect]
     Active Substance: OMALIZUMAB
     Dosage: 300 MILLIGRAM, BIWEEKLY
     Route: 058
  25. XOLAIR [Suspect]
     Active Substance: OMALIZUMAB
     Dosage: 375 MG, BIW
     Route: 058
     Dates: start: 20111228
  26. XOLAIR [Suspect]
     Active Substance: OMALIZUMAB
     Dosage: 35 MG, BIW
     Route: 058
     Dates: start: 2015
  27. XOLAIR [Suspect]
     Active Substance: OMALIZUMAB
     Dosage: 375 MG, EVERY 2 WEEKS
     Route: 058
     Dates: start: 20170127
  28. XOLAIR [Suspect]
     Active Substance: OMALIZUMAB
     Dosage: 375 MG, BIW
     Route: 058
     Dates: start: 20191112
  29. XOLAIR [Suspect]
     Active Substance: OMALIZUMAB
     Dosage: 375 MG, EVERY 2 WEEKS
     Route: 058
     Dates: start: 20170124
  30. XOLAIR [Suspect]
     Active Substance: OMALIZUMAB
     Dosage: 375 MILLIGRAM, EVERY 2 WEEKS
     Route: 058
  31. XOLAIR [Suspect]
     Active Substance: OMALIZUMAB
     Dosage: 375 MILLIGRAM, EVERY 2 WEEKS
     Route: 058
     Dates: start: 20210324
  32. XOLAIR [Suspect]
     Active Substance: OMALIZUMAB
     Dosage: UNK
     Dates: start: 20210505
  33. XOLAIR [Suspect]
     Active Substance: OMALIZUMAB
     Dosage: 375 MILLIGRAM, BIWEEKLY
     Route: 058
     Dates: start: 20210519
  34. XOLAIR [Suspect]
     Active Substance: OMALIZUMAB
     Dosage: 375 MILLIGRAM, BIWEEKLY
     Route: 058
     Dates: start: 20210618
  35. XOLAIR [Suspect]
     Active Substance: OMALIZUMAB
     Dosage: 375 MG, BIW
     Route: 058
     Dates: start: 20210728
  36. XOLAIR [Suspect]
     Active Substance: OMALIZUMAB
     Dosage: UNK
  37. XOLAIR [Suspect]
     Active Substance: OMALIZUMAB
     Dosage: 375 MILLIGRAM, BIWEEKLY
     Route: 058
  38. XOLAIR [Suspect]
     Active Substance: OMALIZUMAB
     Dosage: 375 MILLIGRAM, BIWEEKLY
     Route: 058
     Dates: start: 20220209
  39. XOLAIR [Suspect]
     Active Substance: OMALIZUMAB
     Dosage: 375 MG, BIW
     Route: 058
     Dates: start: 20111228
  40. XOLAIR [Suspect]
     Active Substance: OMALIZUMAB
     Dosage: 375 MG, BIW
     Route: 058
     Dates: start: 20111228
  41. XOLAIR [Suspect]
     Active Substance: OMALIZUMAB
     Dosage: 375 MG, BIW
     Route: 058
     Dates: start: 20111228
  42. MONUROL [Suspect]
     Active Substance: FOSFOMYCIN TROMETHAMINE
     Indication: Product used for unknown indication
     Dosage: UNK
     Route: 065
  43. FOSFOMYCIN TROMETHAMINE [Suspect]
     Active Substance: FOSFOMYCIN TROMETHAMINE
     Indication: Product used for unknown indication
     Dosage: UNK
     Route: 065
  44. OMALIZUMAB [Suspect]
     Active Substance: OMALIZUMAB
     Indication: Bronchopulmonary aspergillosis allergic
     Dosage: 375 MILLIGRAM, BIWEEKLY (375 MG, BIW)
     Route: 058
  45. OMALIZUMAB [Suspect]
     Active Substance: OMALIZUMAB
     Indication: Asthma
     Dosage: 375 MILLIGRAM, BIWEEKLY (375 MG, BIW)
     Route: 058
  46. OMALIZUMAB [Suspect]
     Active Substance: OMALIZUMAB
     Dosage: 375 MILLIGRAM, BIWEEKLY (375 MG, BIW)
     Route: 058
  47. OMALIZUMAB [Suspect]
     Active Substance: OMALIZUMAB
     Dosage: 375 MILLIGRAM, BIWEEKLY (375 MG, BIW)
     Route: 058
  48. OMALIZUMAB [Suspect]
     Active Substance: OMALIZUMAB
     Dosage: UNK
     Route: 065
  49. OMALIZUMAB [Suspect]
     Active Substance: OMALIZUMAB
     Dosage: UNK
     Route: 065
  50. OMALIZUMAB [Suspect]
     Active Substance: OMALIZUMAB
     Dosage: 375 MILLIGRAM, BIWEEKLY (375 MG, BIW)
     Route: 058
  51. OMALIZUMAB [Suspect]
     Active Substance: OMALIZUMAB
     Dosage: UNK
     Route: 058
  52. OMALIZUMAB [Suspect]
     Active Substance: OMALIZUMAB
     Dosage: UNK
     Route: 058
  53. OMALIZUMAB [Suspect]
     Active Substance: OMALIZUMAB
     Dosage: 375 MILLIGRAM, BIWEEKLY (375 MG, BIW)
     Route: 058
  54. OMALIZUMAB [Suspect]
     Active Substance: OMALIZUMAB
     Dosage: UNK
     Route: 058
  55. OMALIZUMAB [Suspect]
     Active Substance: OMALIZUMAB
     Dosage: UNK UNK, BIWEEKLY
     Route: 058
  56. OMALIZUMAB [Suspect]
     Active Substance: OMALIZUMAB
     Dosage: 375 MILLIGRAM, BIWEEKLY (375 MG, BIW)
     Route: 058
  57. OMALIZUMAB [Suspect]
     Active Substance: OMALIZUMAB
     Dosage: 375 MILLIGRAM, BIWEEKLY (375 MG, BIW)
     Route: 058
  58. OMALIZUMAB [Suspect]
     Active Substance: OMALIZUMAB
     Dosage: 375 MILLIGRAM, BIWEEKLY (375 MG, BIW)
     Route: 058
  59. OMALIZUMAB [Suspect]
     Active Substance: OMALIZUMAB
     Dosage: UNK
     Route: 058
  60. OMALIZUMAB [Suspect]
     Active Substance: OMALIZUMAB
     Dosage: 375 MILLIGRAM, BIWEEKLY (375 MG, BIW)
     Route: 058
  61. OMALIZUMAB [Suspect]
     Active Substance: OMALIZUMAB
     Dosage: 375 MILLIGRAM, BIWEEKLY (375 MG, BIW)
     Route: 058
  62. OMALIZUMAB [Suspect]
     Active Substance: OMALIZUMAB
     Dosage: 375 MILLIGRAM, BIWEEKLY (375 MG, BIW)
     Route: 058
  63. OMALIZUMAB [Suspect]
     Active Substance: OMALIZUMAB
     Dosage: 375 MILLIGRAM, BIWEEKLY (375 MG, BIW)
     Route: 058
  64. OMALIZUMAB [Suspect]
     Active Substance: OMALIZUMAB
     Dosage: 375 MILLIGRAM, BIWEEKLY (375 MG, BIW)
     Route: 058
  65. OMALIZUMAB [Suspect]
     Active Substance: OMALIZUMAB
     Dosage: 35 MILLIGRAM, BIWEEKLY (35 MG, BIW)
     Route: 058
  66. OMALIZUMAB [Suspect]
     Active Substance: OMALIZUMAB
     Dosage: 375 MILLIGRAM, BIWEEKLY (375 MG, BIW)
     Route: 058
  67. OMALIZUMAB [Suspect]
     Active Substance: OMALIZUMAB
     Dosage: 375 MILLIGRAM, BIWEEKLY (375 MG, BIW)
     Route: 058
  68. OMALIZUMAB [Suspect]
     Active Substance: OMALIZUMAB
     Dosage: 300 MILLIGRAM, BIWEEKLY (300 MG, BIW)
     Route: 058
  69. OMALIZUMAB [Suspect]
     Active Substance: OMALIZUMAB
     Dosage: 375 MILLIGRAM, BIWEEKLY (375 MG, BIW)
     Route: 058
  70. OMALIZUMAB [Suspect]
     Active Substance: OMALIZUMAB
     Dosage: 375 MILLIGRAM, BIWEEKLY (375 MG, BIW)
     Route: 058
  71. OMALIZUMAB [Suspect]
     Active Substance: OMALIZUMAB
     Dosage: 375 MILLIGRAM, BIWEEKLY (375 MG, BIW)
     Route: 058
  72. OMALIZUMAB [Suspect]
     Active Substance: OMALIZUMAB
     Dosage: UNK
     Route: 058
  73. OMALIZUMAB [Suspect]
     Active Substance: OMALIZUMAB
     Dosage: 375 MILLIGRAM, BIWEEKLY (375 MG, BIW)
     Route: 058
  74. OMALIZUMAB [Suspect]
     Active Substance: OMALIZUMAB
     Dosage: 375 MILLIGRAM, BIWEEKLY (375 MG, BIW)
     Route: 058
  75. OMALIZUMAB [Suspect]
     Active Substance: OMALIZUMAB
     Dosage: 375 MILLIGRAM, BIWEEKLY (375 MG, BIW)
     Route: 058
  76. OMALIZUMAB [Suspect]
     Active Substance: OMALIZUMAB
     Dosage: 375 MILLIGRAM, BIWEEKLY (375 MG, BIW)
     Route: 058
  77. OMALIZUMAB [Suspect]
     Active Substance: OMALIZUMAB
     Dosage: 375 MILLIGRAM, BIWEEKLY (375 MG, BIW)
     Route: 058
  78. OMALIZUMAB [Suspect]
     Active Substance: OMALIZUMAB
     Dosage: 375 MILLIGRAM, BIWEEKLY (375 MG, BIW)
     Route: 058
  79. OMALIZUMAB [Suspect]
     Active Substance: OMALIZUMAB
     Dosage: 375 MILLIGRAM, BIWEEKLY (375 MG, BIW)
     Route: 058
  80. OMALIZUMAB [Suspect]
     Active Substance: OMALIZUMAB
     Dosage: 300 MILLIGRAM, BIWEEKLY (300 MG, BIW)
     Route: 058
  81. OMALIZUMAB [Suspect]
     Active Substance: OMALIZUMAB
     Indication: Product used for unknown indication
     Dosage: 375 MILLIGRAM, BIWEEKLY (375 MG, BIW)
     Route: 057
  82. ADVAIR HFA [Concomitant]
     Active Substance: FLUTICASONE PROPIONATE\SALMETEROL XINAFOATE
     Indication: Product used for unknown indication
     Dosage: 50 MILLIGRAM, BID
     Route: 065
  83. ADVAIR HFA [Concomitant]
     Active Substance: FLUTICASONE PROPIONATE\SALMETEROL XINAFOATE
     Dosage: UNK
     Route: 065
  84. ADVAIR HFA [Concomitant]
     Active Substance: FLUTICASONE PROPIONATE\SALMETEROL XINAFOATE
     Dosage: 2 DOSAGE FORM, QD
     Route: 065
  85. SINGULAIR [Concomitant]
     Active Substance: MONTELUKAST SODIUM
     Indication: Product used for unknown indication
     Dosage: UNK
     Route: 065
  86. VENTOLIN [Concomitant]
     Active Substance: ALBUTEROL SULFATE
     Indication: Product used for unknown indication
     Dosage: UNK
     Route: 065
  87. PREDNISONE [Concomitant]
     Active Substance: PREDNISONE
     Indication: Product used for unknown indication
     Dosage: 7.5 MILLIGRAM, QD
     Route: 065
  88. PREDNISONE [Concomitant]
     Active Substance: PREDNISONE
     Dosage: UNK
     Route: 065
  89. PREDNISONE [Concomitant]
     Active Substance: PREDNISONE
     Dosage: 1 DOSAGE FORM, QD
     Route: 065

REACTIONS (44)
  - Device related thrombosis [Not Recovered/Not Resolved]
  - Pseudomonas infection [Not Recovered/Not Resolved]
  - Tooth fracture [Not Recovered/Not Resolved]
  - Respiratory tract irritation [Not Recovered/Not Resolved]
  - Productive cough [Not Recovered/Not Resolved]
  - Pneumonia [Not Recovered/Not Resolved]
  - Aphonia [Not Recovered/Not Resolved]
  - Hypersensitivity [Not Recovered/Not Resolved]
  - Weight decreased [Not Recovered/Not Resolved]
  - Sputum discoloured [Not Recovered/Not Resolved]
  - Pruritus [Not Recovered/Not Resolved]
  - Pulmonary thrombosis [Not Recovered/Not Resolved]
  - Dyspnoea [Not Recovered/Not Resolved]
  - Gastrointestinal haemorrhage [Not Recovered/Not Resolved]
  - Small intestinal obstruction [Not Recovered/Not Resolved]
  - Haemoptysis [Not Recovered/Not Resolved]
  - Coagulopathy [Not Recovered/Not Resolved]
  - Lung disorder [Not Recovered/Not Resolved]
  - Lower respiratory tract infection [Not Recovered/Not Resolved]
  - Prostate cancer [Not Recovered/Not Resolved]
  - Nephrolithiasis [Not Recovered/Not Resolved]
  - Erythema [Not Recovered/Not Resolved]
  - Heart rate irregular [Not Recovered/Not Resolved]
  - Heart rate decreased [Not Recovered/Not Resolved]
  - Blood pressure systolic increased [Not Recovered/Not Resolved]
  - Dry skin [Not Recovered/Not Resolved]
  - Periorbital oedema [Not Recovered/Not Resolved]
  - Infected dermal cyst [Not Recovered/Not Resolved]
  - Fatigue [Not Recovered/Not Resolved]
  - Intestinal obstruction [Not Recovered/Not Resolved]
  - Cronobacter infection [Not Recovered/Not Resolved]
  - Malaise [Not Recovered/Not Resolved]
  - Eye pruritus [Not Recovered/Not Resolved]
  - Rhinorrhoea [Not Recovered/Not Resolved]
  - Eye swelling [Not Recovered/Not Resolved]
  - Back pain [Not Recovered/Not Resolved]
  - Pain in extremity [Not Recovered/Not Resolved]
  - Rib fracture [Not Recovered/Not Resolved]
  - Pain [Not Recovered/Not Resolved]
  - Product dose omission issue [Not Recovered/Not Resolved]
  - Sputum abnormal [Not Recovered/Not Resolved]
  - Wound [Not Recovered/Not Resolved]
  - Deep vein thrombosis [Not Recovered/Not Resolved]
  - Pulmonary embolism [Not Recovered/Not Resolved]

NARRATIVE: CASE EVENT DATE: 20180201
